FAERS Safety Report 21926528 (Version 2)
Quarter: 2023Q1

REPORT INFORMATION
  Report Type: Spontaneous
  Country: IN (occurrence: IN)
  Receive Date: 20230130
  Receipt Date: 20230228
  Transmission Date: 20230417
  Serious: Yes (Death, Life-Threatening, Other)
  Sender: FDA-Public Use
  Company Number: IN-PFIZER INC-202300030697

PATIENT
  Age: 27 Year
  Sex: Female

DRUGS (2)
  1. VORICONAZOLE [Suspect]
     Active Substance: VORICONAZOLE
     Indication: Pulmonary mucormycosis
     Dosage: UNK
     Route: 042
  2. AMPHOTERICIN B [Suspect]
     Active Substance: AMPHOTERICIN B
     Indication: Aspergillus infection
     Dosage: UNK

REACTIONS (4)
  - Drug ineffective [Fatal]
  - Septic shock [Fatal]
  - Hypotension [Fatal]
  - Hypoxia [Fatal]
